FAERS Safety Report 21095542 (Version 3)
Quarter: 2022Q4

REPORT INFORMATION
  Report Type: Spontaneous
  Country: US (occurrence: US)
  Receive Date: 20220718
  Receipt Date: 20221227
  Transmission Date: 20230113
  Serious: No
  Sender: FDA-Public Use
  Company Number: US-PFIZER INC-PV202200023521

PATIENT
  Age: 68 Year
  Sex: Female
  Weight: 76.2 kg

DRUGS (1)
  1. IBRANCE [Suspect]
     Active Substance: PALBOCICLIB
     Indication: Breast cancer metastatic
     Dosage: 125 MG, CYCLIC (1 TABLET FOR 21 DAYS AND THEN OFF A WEEK)

REACTIONS (4)
  - Cold urticaria [Unknown]
  - Anaemia [Unknown]
  - Weight decreased [Unknown]
  - Renal disorder [Unknown]
